FAERS Safety Report 6973261-2 (Version None)
Quarter: 2010Q3

REPORT INFORMATION
  Report Type: 
  Country: None (occurrence: None)
  Receive Date: 20100909
  Receipt Date: 20100902
  Transmission Date: 20110219
  Serious: Yes (Other)
  Sender: FDA-Public Use
  Company Number: US-JNJCH-2010020183

PATIENT
  Age: 12 Year
  Sex: Male
  Weight: 37.2 kg

DRUGS (1)
  1. CHILDREN'S ZYRTEC ALLERGY [Suspect]
     Indication: SEASONAL ALLERGY
     Dosage: TEXT:TWO TEASPOONFULS ONCE
     Route: 048
     Dates: start: 20100901, end: 20100901

REACTIONS (4)
  - DECREASED APPETITE [None]
  - LOSS OF CONSCIOUSNESS [None]
  - PRODUCT QUALITY ISSUE [None]
  - PYREXIA [None]
